FAERS Safety Report 13569088 (Version 1)
Quarter: 2017Q2

REPORT INFORMATION
  Report Type: Spontaneous
  Country: FR (occurrence: FR)
  Receive Date: 20170522
  Receipt Date: 20170522
  Transmission Date: 20170830
  Serious: Yes (Hospitalization)
  Sender: FDA-Public Use
  Company Number: FR-PFIZER INC-2017216097

PATIENT
  Age: 72 Year
  Sex: Female

DRUGS (14)
  1. LANTUS [Concomitant]
     Active Substance: INSULIN GLARGINE
     Dosage: 90 IU
  2. PLAVIX [Concomitant]
     Active Substance: CLOPIDOGREL BISULFATE
     Dosage: UNK
  3. DAFALGAN CODEINE [Concomitant]
     Active Substance: ACETAMINOPHEN\CODEINE PHOSPHATE
     Dosage: UNK
  4. ALDACTONE [Suspect]
     Active Substance: SPIRONOLACTONE
     Indication: HYPERTENSIVE CARDIOMYOPATHY
     Dosage: 50 MG ONCE DAILY
     Route: 048
     Dates: end: 20150420
  5. APROVEL [Suspect]
     Active Substance: IRBESARTAN
     Indication: HYPERTENSIVE CARDIOMYOPATHY
     Dosage: 300 MG ONCE DAILY
     Route: 048
     Dates: end: 20150420
  6. NOVORAPID [Concomitant]
     Active Substance: INSULIN ASPART
     Dosage: 56 IU
  7. NEBIVOLOL. [Concomitant]
     Active Substance: NEBIVOLOL
     Dosage: UNK
  8. TRAMADOL. [Concomitant]
     Active Substance: TRAMADOL
     Dosage: UNK
  9. FENOFIBRATE. [Concomitant]
     Active Substance: FENOFIBRATE
     Dosage: UNK
  10. LASILIX /00032601/ [Suspect]
     Active Substance: FUROSEMIDE
     Dosage: 40 MG ONCE DAILY
     Route: 048
  11. EUPRESSYL /00631801/ [Suspect]
     Active Substance: URAPIDIL
     Indication: HYPERTENSIVE CARDIOMYOPATHY
     Dosage: 30 MG ONCE DAILY
     Route: 048
     Dates: end: 20150420
  12. LERCANIDIPINE [Concomitant]
     Active Substance: LERCANIDIPINE
     Dosage: UNK
  13. LASILIX /00032601/ [Suspect]
     Active Substance: FUROSEMIDE
     Indication: HYPERTENSIVE CARDIOMYOPATHY
     Dosage: 60 MG ONCE DAILY
     Route: 048
  14. STAGID [Concomitant]
     Active Substance: METFORMIN PAMOATE
     Dosage: UNK

REACTIONS (2)
  - Diabetes mellitus inadequate control [Unknown]
  - Acute kidney injury [Recovering/Resolving]

NARRATIVE: CASE EVENT DATE: 201503
